FAERS Safety Report 9986262 (Version 1)
Quarter: 2014Q1

REPORT INFORMATION
  Report Type: Spontaneous
  Country: US (occurrence: US)
  Receive Date: 20140307
  Receipt Date: 20140307
  Transmission Date: 20141002
  Serious: No
  Sender: FDA-Public Use
  Company Number: US-ASTRAZENECA-2014SE08015

PATIENT
  Sex: Female
  Weight: 49 kg

DRUGS (6)
  1. NEXIUM [Suspect]
     Indication: GASTROOESOPHAGEAL REFLUX DISEASE
     Route: 048
  2. NEXIUM [Suspect]
     Indication: GASTROOESOPHAGEAL REFLUX DISEASE
     Route: 048
  3. LISINOPRIL/HCTZ [Suspect]
     Indication: BLOOD PRESSURE
     Route: 048
  4. LOW DOSE ASPIRIN [Concomitant]
  5. VITAMINS [Concomitant]
  6. CALCIUM [Concomitant]

REACTIONS (2)
  - Headache [Unknown]
  - Intentional drug misuse [Unknown]
